FAERS Safety Report 10676076 (Version 1)
Quarter: 2014Q4

REPORT INFORMATION
  Report Type: Report from Study
  Country: DE (occurrence: DE)
  Receive Date: 20141225
  Receipt Date: 20141225
  Transmission Date: 20150529
  Serious: Yes (Hospitalization)
  Sender: FDA-Public Use
  Company Number: DE-ABBVIE-14K-062-1325554-00

PATIENT
  Sex: Male

DRUGS (2)
  1. HUMIRA [Suspect]
     Active Substance: ADALIMUMAB
     Indication: COLITIS ULCERATIVE
     Route: 058
     Dates: start: 20131003, end: 20141129
  2. MEZAVANT [Concomitant]
     Active Substance: MESALAMINE
     Indication: PRODUCT USED FOR UNKNOWN INDICATION

REACTIONS (2)
  - Inflammatory marker increased [Recovered/Resolved]
  - Thyroiditis subacute [Recovered/Resolved]
